FAERS Safety Report 11883776 (Version 1)
Quarter: 2016Q1

REPORT INFORMATION
  Report Type: Spontaneous
  Country: FR (occurrence: FR)
  Receive Date: 20160101
  Receipt Date: 20160101
  Transmission Date: 20160526
  Serious: Yes (Hospitalization)
  Sender: FDA-Public Use
  Company Number: FR-ROCHE-1682463

PATIENT
  Age: 0 Year
  Sex: Male

DRUGS (6)
  1. CIMZIA [Suspect]
     Active Substance: CERTOLIZUMAB PEGOL
     Indication: PRODUCT USED FOR UNKNOWN INDICATION
     Route: 064
  2. ROACTEMRA [Suspect]
     Active Substance: TOCILIZUMAB
     Indication: PRODUCT USED FOR UNKNOWN INDICATION
     Route: 064
     Dates: start: 20151012, end: 20151109
  3. CLAIRYG [Suspect]
     Active Substance: HUMAN IMMUNOGLOBULIN G
     Indication: PRODUCT USED FOR UNKNOWN INDICATION
     Route: 065
  4. KINERET [Suspect]
     Active Substance: ANAKINRA
     Indication: PRODUCT USED FOR UNKNOWN INDICATION
     Route: 064
     Dates: end: 20151104
  5. PREDNISONE. [Suspect]
     Active Substance: PREDNISONE
     Indication: PRODUCT USED FOR UNKNOWN INDICATION
     Route: 064
  6. COLCHICINE. [Concomitant]
     Active Substance: COLCHICINE
     Route: 064

REACTIONS (6)
  - Pyrexia [Recovering/Resolving]
  - Bradycardia foetal [Recovered/Resolved]
  - Thrombocytopenia [Recovering/Resolving]
  - Gastrointestinal disorder [Recovering/Resolving]
  - Hepatosplenomegaly [Recovering/Resolving]
  - Foetal exposure during pregnancy [Unknown]

NARRATIVE: CASE EVENT DATE: 20151128
